FAERS Safety Report 16242355 (Version 2)
Quarter: 2019Q2

REPORT INFORMATION
  Report Type: Spontaneous
  Country: JP (occurrence: JP)
  Receive Date: 20190426
  Receipt Date: 20190613
  Transmission Date: 20190711
  Serious: Yes (Hospitalization, Other)
  Sender: FDA-Public Use
  Company Number: JP-ROCHE-2308181

PATIENT
  Age: 6 Decade
  Sex: Female

DRUGS (1)
  1. KADCYLA [Suspect]
     Active Substance: ADO-TRASTUZUMAB EMTANSINE
     Indication: BREAST CANCER
     Dosage: DOSAGE IS UNCERTAIN.
     Route: 041
     Dates: start: 201904, end: 201904

REACTIONS (2)
  - Myocardial infarction [Recovering/Resolving]
  - Metastases to central nervous system [Unknown]
